FAERS Safety Report 12508636 (Version 3)
Quarter: 2016Q3

REPORT INFORMATION
  Report Type: Report from Study
  Country: JP (occurrence: JP)
  Receive Date: 20160629
  Receipt Date: 20160812
  Transmission Date: 20161109
  Serious: Yes (Hospitalization, Other)
  Sender: FDA-Public Use
  Company Number: JP-ASTELLAS-2016JP007926AA

PATIENT
  Age: 77 Year
  Sex: Female
  Weight: 39 kg

DRUGS (22)
  1. TACROLIMUS. [Suspect]
     Active Substance: TACROLIMUS
     Indication: DERMATOMYOSITIS
  2. PREDNISOLONE. [Concomitant]
     Active Substance: PREDNISOLONE
     Indication: INTERSTITIAL LUNG DISEASE
  3. ENDOXAN                            /00021101/ [Concomitant]
     Active Substance: CYCLOPHOSPHAMIDE
     Indication: INTERSTITIAL LUNG DISEASE
     Dosage: UNK UNK, UNKNOWN FREQ.
     Route: 042
     Dates: start: 2015
  4. BAKTAR [Concomitant]
     Active Substance: SULFAMETHOXAZOLE\TRIMETHOPRIM
     Indication: PROPHYLAXIS
     Route: 048
     Dates: start: 20150103
  5. PARIET [Concomitant]
     Active Substance: RABEPRAZOLE SODIUM
     Route: 048
     Dates: start: 20150213
  6. MARZULENE                          /01184501/ [Concomitant]
     Indication: PROPHYLAXIS
     Route: 048
     Dates: start: 20140115, end: 20150220
  7. TACROLIMUS. [Suspect]
     Active Substance: TACROLIMUS
     Indication: INTERSTITIAL LUNG DISEASE
     Route: 048
     Dates: start: 20141226, end: 20150226
  8. SELARA [Concomitant]
     Active Substance: EPLERENONE
     Indication: PRIMARY HYPERALDOSTERONISM
     Route: 048
  9. PREDNISOLONE. [Concomitant]
     Active Substance: PREDNISOLONE
     Indication: DERMATOMYOSITIS
     Dosage: UNK UNK, UNKNOWN FREQ.
     Route: 065
  10. RINDERON                           /00008501/ [Concomitant]
     Active Substance: BETAMETHASONE
     Route: 048
     Dates: start: 20150105, end: 20150118
  11. RINDERON                           /00008501/ [Concomitant]
     Active Substance: BETAMETHASONE
     Dosage: 3.0 MG, ONCE DAILY
     Route: 048
     Dates: start: 20150129, end: 20150211
  12. RINDERON                           /00008501/ [Concomitant]
     Active Substance: BETAMETHASONE
     Route: 048
     Dates: start: 20150212, end: 20150225
  13. HALIZON [Concomitant]
     Active Substance: AMPHOTERICIN B
     Indication: PROPHYLAXIS
     Route: 048
     Dates: start: 20150123
  14. ENDOXAN                            /00021101/ [Concomitant]
     Active Substance: CYCLOPHOSPHAMIDE
     Indication: DERMATOMYOSITIS
     Route: 042
     Dates: start: 20141222, end: 20141222
  15. RINDERON                           /00008501/ [Concomitant]
     Active Substance: BETAMETHASONE
     Route: 048
     Dates: start: 20150119, end: 20150128
  16. RINDERON                           /00008501/ [Concomitant]
     Active Substance: BETAMETHASONE
     Dosage: 3.0 MG, ONCE DAILY
     Route: 048
     Dates: start: 20150226, end: 20150320
  17. NORVASC [Concomitant]
     Active Substance: AMLODIPINE BESYLATE
     Indication: PRIMARY HYPERALDOSTERONISM
     Route: 048
     Dates: end: 20141223
  18. FOSAMAC [Concomitant]
     Active Substance: ALENDRONATE SODIUM
     Indication: PROPHYLAXIS
     Route: 048
     Dates: start: 20141226
  19. MYSLEE [Concomitant]
     Active Substance: ZOLPIDEM TARTRATE
     Indication: PROPHYLAXIS
     Route: 048
     Dates: start: 20141222
  20. PARIET [Concomitant]
     Active Substance: RABEPRAZOLE SODIUM
     Indication: PROPHYLAXIS
     Route: 048
     Dates: start: 20141215, end: 20150114
  21. RINDERON                           /00008501/ [Concomitant]
     Active Substance: BETAMETHASONE
     Indication: PRODUCT USED FOR UNKNOWN INDICATION
     Dosage: 4.0 MG, ONCE DAILY
     Route: 048
     Dates: start: 20141219, end: 20150104
  22. GASCON [Concomitant]
     Active Substance: DIMETHICONE
     Indication: PROPHYLAXIS
     Route: 048

REACTIONS (2)
  - Thrombotic thrombocytopenic purpura [Not Recovered/Not Resolved]
  - Chylothorax [Recovered/Resolved]

NARRATIVE: CASE EVENT DATE: 20150127
